FAERS Safety Report 7426620-8 (Version None)
Quarter: 2011Q2

REPORT INFORMATION
  Report Type: 
  Country: None (occurrence: None)
  Receive Date: 20110420
  Receipt Date: 20110415
  Transmission Date: 20111010
  Serious: Yes (Hospitalization)
  Sender: FDA-Public Use
  Company Number: CHNY2011JP00448

PATIENT
  Sex: Female

DRUGS (5)
  1. PURSENNID [Suspect]
     Indication: CONSTIPATION
     Dosage: 1 DF, UNK
     Route: 065
  2. SODIUM PICOSULFATE [Concomitant]
     Indication: CONSTIPATION
     Dosage: 50 GTTS, UNK
  3. DRUG THERAPY NOS [Concomitant]
  4. MAGNESIUM OXIDE [Concomitant]
     Indication: CONSTIPATION
     Dosage: 4 TABLETS OF 330 MG, UNK
  5. GLYCERIN [Concomitant]
     Indication: CONSTIPATION
     Dosage: 180 ML, UNK
     Route: 054

REACTIONS (8)
  - MENTAL IMPAIRMENT [None]
  - SIGMOIDECTOMY [None]
  - DYSCHEZIA [None]
  - X-RAY GASTROINTESTINAL TRACT ABNORMAL [None]
  - INTESTINAL DILATATION [None]
  - CONGENITAL MEGACOLON [None]
  - FLATULENCE [None]
  - ILEUS [None]
